FAERS Safety Report 11311346 (Version 1)
Quarter: 2015Q3

REPORT INFORMATION
  Report Type: Spontaneous
  Country: JP (occurrence: None)
  Receive Date: 20150723
  Receipt Date: 20150723
  Transmission Date: 20151125
  Serious: Yes (Congenital Anomaly)
  Sender: FDA-Public Use
  Company Number: UCM201507-000489

PATIENT

DRUGS (3)
  1. DIVALPROEX SODIUM (DIVALPROEX SODIUM) (DIVALPROEX SODIUM) [Suspect]
     Active Substance: DIVALPROEX SODIUM
  2. PHENOBARBITAL (PHENOBARBITAL) (PHENOBARBITAL) [Suspect]
     Active Substance: PHENOBARBITAL
  3. PHENYTOIN (PHENYTOIN) (PHENYTOIN) [Suspect]
     Active Substance: PHENYTOIN

REACTIONS (2)
  - Foetal anticonvulsant syndrome [None]
  - Foetal exposure during pregnancy [None]
